FAERS Safety Report 5704125-X (Version None)
Quarter: 2008Q2

REPORT INFORMATION
  Report Type: 
  Country: None (occurrence: None)
  Receive Date: 20080414
  Receipt Date: 20080414
  Transmission Date: 20081010
  Serious: Yes (Other)
  Sender: FDA-Public Use
  Company Number: None

PATIENT
  Sex: Female
  Weight: 138.3471 kg

DRUGS (1)
  1. HEPARIN LOCK-FLUSH [Suspect]
     Indication: CENTRAL VENOUS CATHETERISATION
     Dosage: ONE SYRINGE TWICE DAILY FOR EA IV  3 1/2 DAYS
     Route: 042
     Dates: start: 20080403, end: 20080406

REACTIONS (5)
  - ABDOMINAL PAIN UPPER [None]
  - HYPOTENSION [None]
  - NAUSEA [None]
  - PHARMACEUTICAL PRODUCT COMPLAINT [None]
  - VOMITING [None]
